FAERS Safety Report 4471882-2 (Version None)
Quarter: 2004Q4

REPORT INFORMATION
  Report Type: 
  Country: None (occurrence: None)
  Receive Date: 20041012
  Receipt Date: 20041007
  Transmission Date: 20050328
  Serious: Yes (Other)
  Sender: FDA-Public Use
  Company Number: PHBS2004CA13419

PATIENT
  Sex: Male

DRUGS (2)
  1. CLOZARIL [Suspect]
     Dosage: 300 MG/D
     Route: 048
  2. RISPERDAL [Concomitant]
     Dosage: 6 MG/D
     Route: 065

REACTIONS (2)
  - ELECTROCARDIOGRAM ST SEGMENT [None]
  - FORMICATION [None]
